FAERS Safety Report 12523587 (Version 1)
Quarter: 2016Q3

REPORT INFORMATION
  Report Type: Spontaneous
  Country: US (occurrence: US)
  Receive Date: 20160703
  Receipt Date: 20160703
  Transmission Date: 20161109
  Serious: No
  Sender: FDA-Public Use
  Company Number: US-ASTRAZENECA-2016SE71729

PATIENT
  Age: 31 Year
  Sex: Male
  Weight: 54.4 kg

DRUGS (3)
  1. RANITIDINE. [Concomitant]
     Active Substance: RANITIDINE
     Indication: GASTROOESOPHAGEAL REFLUX DISEASE
     Route: 048
     Dates: start: 2015
  2. PROBIOTICS [Concomitant]
     Active Substance: PROBIOTICS NOS
     Indication: FUNCTIONAL GASTROINTESTINAL DISORDER
     Dosage: 1X/DAY
     Dates: start: 201606
  3. NEXIUM 24HR [Suspect]
     Active Substance: ESOMEPRAZOLE MAGNESIUM
     Indication: GASTROOESOPHAGEAL REFLUX DISEASE
     Route: 048
     Dates: start: 201605, end: 20160626

REACTIONS (5)
  - Condition aggravated [Not Recovered/Not Resolved]
  - Dizziness [Recovering/Resolving]
  - Feeling jittery [Not Recovered/Not Resolved]
  - Heart rate irregular [Not Recovered/Not Resolved]
  - Product use issue [Unknown]

NARRATIVE: CASE EVENT DATE: 201605
